FAERS Safety Report 14659610 (Version 2)
Quarter: 2018Q1

REPORT INFORMATION
  Report Type: Spontaneous
  Country: US (occurrence: US)
  Receive Date: 20180320
  Receipt Date: 20180321
  Transmission Date: 20180509
  Serious: No
  Sender: FDA-Public Use
  Company Number: US-PFIZER INC-2018113948

PATIENT
  Age: 70 Year
  Sex: Female
  Weight: 72.12 kg

DRUGS (4)
  1. LYRICA [Suspect]
     Active Substance: PREGABALIN
     Dosage: TWO CAPSULES AGAIN
     Dates: start: 20180314
  2. HYDROCODONE [Concomitant]
     Active Substance: HYDROCODONE
     Indication: PAIN
     Dosage: 5-325 MG , 3X/DAY
     Route: 048
  3. LYRICA [Suspect]
     Active Substance: PREGABALIN
     Indication: NEURALGIA
     Dosage: 75 MG, 2X/DAY, ONE IN THE MORNING AND ONE AT NIGHT
     Route: 048
     Dates: start: 201710
  4. LYRICA [Suspect]
     Active Substance: PREGABALIN
     Indication: ARTHRITIS
     Dosage: ONE 75 MG CAPSULE A DAY
     Dates: start: 201712

REACTIONS (1)
  - Drug ineffective for unapproved indication [Unknown]
